FAERS Safety Report 25834932 (Version 2)
Quarter: 2025Q3

REPORT INFORMATION
  Report Type: Report from Study
  Country: GB (occurrence: GB)
  Receive Date: 20250923
  Receipt Date: 20250929
  Transmission Date: 20251021
  Serious: Yes (Hospitalization)
  Sender: ABBVIE
  Company Number: GB-ABBVIE-6468136

PATIENT
  Sex: Female

DRUGS (1)
  1. SKYRIZI [Suspect]
     Active Substance: RISANKIZUMAB-RZAA
     Indication: Psoriasis
     Dosage: SKYRIZI 150MG/1ML. DOSE FORM: SOLUTION FOR INJECTION PRE-FILLED PEN, 1 PRE-FILLED DISPOSABLE INJE...
     Route: 058
     Dates: start: 20230315

REACTIONS (3)
  - Back disorder [Not Recovered/Not Resolved]
  - Pruritus [Unknown]
  - Stress [Unknown]
